FAERS Safety Report 7200320-1 (Version None)
Quarter: 2010Q4

REPORT INFORMATION
  Report Type: 
  Country: None (occurrence: None)
  Receive Date: 20101228
  Receipt Date: 20101215
  Transmission Date: 20110411
  Serious: Yes (Other)
  Sender: FDA-Public Use
  Company Number: B0690705A

PATIENT
  Age: 77 Year
  Sex: Female

DRUGS (2)
  1. NABUMETONE [Suspect]
     Dosage: 2G PER DAY
     Route: 048
     Dates: start: 20101118
  2. LERCANIDIPINE [Concomitant]

REACTIONS (2)
  - TOXIC SKIN ERUPTION [None]
  - TRANSAMINASES INCREASED [None]
